FAERS Safety Report 20668279 (Version 2)
Quarter: 2022Q2

REPORT INFORMATION
  Report Type: Spontaneous
  Country: US (occurrence: US)
  Receive Date: 20220404
  Receipt Date: 20220420
  Transmission Date: 20220721
  Serious: No
  Sender: FDA-Public Use
  Company Number: US-PFIZER INC-202200511376

PATIENT
  Age: 51 Year
  Sex: Female
  Weight: 81.19 kg

DRUGS (11)
  1. PAXLOVID [Suspect]
     Active Substance: NIRMATRELVIR\RITONAVIR
     Indication: COVID-19 treatment
     Dosage: [PF-07321332 300 MG]/[RITONAVIR 100 MG]; 2X/DAY (REPORTED AS THREE TABLETS TWICE DAILY FOR 5 DAYS)
     Dates: start: 20220330, end: 202204
  2. MIRENA [Concomitant]
     Active Substance: LEVONORGESTREL
     Dosage: UNK, DAILY,
     Route: 015
  3. SERTRALINE [Concomitant]
     Active Substance: SERTRALINE HYDROCHLORIDE
     Dosage: 50 MG, DAILY
  4. CETIRIZINE [Concomitant]
     Active Substance: CETIRIZINE HYDROCHLORIDE
     Dosage: UNK, DAILY
  5. METOPROLOL [Concomitant]
     Active Substance: METOPROLOL
     Dosage: UNK, DAILY
  6. SPIRONOLACTONE [Concomitant]
     Active Substance: SPIRONOLACTONE
     Dosage: UNK, DAILY
  7. SENNOSIDES A AND B [Concomitant]
     Active Substance: SENNOSIDES A AND B
     Dosage: 1 DF, DAILY
  8. MAGNESIUM [Concomitant]
     Active Substance: MAGNESIUM
     Dosage: 400 MG, DAILY
  9. VITAMIN D3 [Concomitant]
     Active Substance: CHOLECALCIFEROL
     Dosage: 5000 IU, DAILY
  10. PROVIGIL [Concomitant]
     Active Substance: MODAFINIL
     Dosage: 250 MG, DAILY, (4 WEEKS)
  11. PIROXICAM [Concomitant]
     Active Substance: PIROXICAM
     Dosage: UNK, DAILY

REACTIONS (2)
  - Dysgeusia [Recovered/Resolved]
  - Product taste abnormal [Recovered/Resolved]

NARRATIVE: CASE EVENT DATE: 20220330
